FAERS Safety Report 15765884 (Version 1)
Quarter: 2018Q4

REPORT INFORMATION
  Report Type: Spontaneous
  Country: US (occurrence: US)
  Receive Date: 20181227
  Receipt Date: 20181227
  Transmission Date: 20190205
  Serious: Yes (Other)
  Sender: FDA-Public Use
  Company Number: US-SA-2018SA000282

PATIENT
  Age: 79 Year
  Sex: Female
  Weight: 60 kg

DRUGS (11)
  1. ALLOPURINOL. [Concomitant]
     Active Substance: ALLOPURINOL
  2. ALPRAZOLAM. [Concomitant]
     Active Substance: ALPRAZOLAM
  3. AMLODIPINE [Concomitant]
     Active Substance: AMLODIPINE BESYLATE
     Dosage: UNK
     Dates: start: 20060104
  4. VITAMIN B-6 [Concomitant]
     Active Substance: PYRIDOXINE
  5. OMEPRAZOLE. [Concomitant]
     Active Substance: OMEPRAZOLE
  6. VITAMIN D3 [Concomitant]
     Active Substance: CHOLECALCIFEROL
  7. TAXOTERE [Suspect]
     Active Substance: DOCETAXEL
     Dosage: 75 MG, Q3W
     Route: 042
     Dates: start: 20131010, end: 20131010
  8. LISINOPRIL. [Concomitant]
     Active Substance: LISINOPRIL
  9. TAXOTERE [Suspect]
     Active Substance: DOCETAXEL
     Indication: BREAST CANCER
     Dosage: 75 MG, Q3W
     Route: 042
     Dates: start: 20130606, end: 20130606
  10. HERCEPTIN [Concomitant]
     Active Substance: TRASTUZUMAB
  11. PARAPLATIN [Concomitant]
     Active Substance: CARBOPLATIN

REACTIONS (6)
  - Emotional distress [Unknown]
  - Pain [Unknown]
  - Impaired quality of life [Unknown]
  - Anxiety [Unknown]
  - Psychological trauma [Unknown]
  - Alopecia [Recovering/Resolving]

NARRATIVE: CASE EVENT DATE: 20140410
